FAERS Safety Report 13891698 (Version 1)
Quarter: 2017Q3

REPORT INFORMATION
  Report Type: Report from Study
  Country: TW (occurrence: TW)
  Receive Date: 20170822
  Receipt Date: 20170822
  Transmission Date: 20171127
  Serious: Yes (Other)
  Sender: FDA-Public Use
  Company Number: TW-MYLANLABS-2017M1051582

PATIENT

DRUGS (5)
  1. FOLINIC ACID [Suspect]
     Active Substance: LEUCOVORIN
     Indication: OESOPHAGEAL CARCINOMA
     Dosage: 200 MG/M2 FOR 2 HOURS ON DAY 1
     Route: 042
  2. FLUOROURACIL. [Suspect]
     Active Substance: FLUOROURACIL
     Dosage: 400 MG/M2 FOR 1 HOUR FOR 5 DAYS ON WEEKS 1 AND 5 OF RADIATION THERAPY.
     Route: 040
  3. FLUOROURACIL. [Suspect]
     Active Substance: FLUOROURACIL
     Indication: OESOPHAGEAL CARCINOMA
     Dosage: 2400 MG/M2 CONTINUOUSLY FOR 48 HOURS ON DAY 1
     Route: 042
  4. OXALIPLATIN. [Suspect]
     Active Substance: OXALIPLATIN
     Dosage: 45 MG/M2 I.V. FOR 2 HOURS ON DAY 1 OF RADIATION THERAPY, EVERY 14 DAYS
     Route: 042
  5. OXALIPLATIN. [Suspect]
     Active Substance: OXALIPLATIN
     Indication: OESOPHAGEAL CARCINOMA
     Dosage: 400 MG/M2 FOR 1 HOUR FOR 5 DAYS ON WEEKS 1 AND 5 OF RADIATION THERAPY.
     Route: 042

REACTIONS (1)
  - Oesophagitis [Unknown]
